FAERS Safety Report 9384061 (Version 35)
Quarter: 2021Q3

REPORT INFORMATION
  Report Type: Other
  Country: CA (occurrence: CA)
  Receive Date: 20130705
  Receipt Date: 20210819
  Transmission Date: 20211014
  Serious: Yes (Hospitalization, Other)
  Sender: FDA-Public Use
  Company Number: CA-ROCHE-1183652

PATIENT
  Age: 53 Year
  Sex: Female
  Weight: 57.2 kg

DRUGS (33)
  1. ACTEMRA [Suspect]
     Active Substance: TOCILIZUMAB
     Route: 042
     Dates: start: 20170103, end: 20170301
  2. ACTEMRA [Suspect]
     Active Substance: TOCILIZUMAB
     Route: 042
     Dates: start: 20170329, end: 20180716
  3. PREDNISONE. [Suspect]
     Active Substance: PREDNISONE
     Route: 065
  4. ACTEMRA [Suspect]
     Active Substance: TOCILIZUMAB
     Route: 042
     Dates: start: 20161007, end: 20161007
  5. ACTEMRA [Suspect]
     Active Substance: TOCILIZUMAB
     Route: 042
     Dates: start: 20201205
  6. CALCIUM CARBONATE. [Concomitant]
     Active Substance: CALCIUM CARBONATE
  7. CYMBALTA [Concomitant]
     Active Substance: DULOXETINE HYDROCHLORIDE
     Dates: start: 201402
  8. GARLIC. [Concomitant]
     Active Substance: GARLIC
  9. NAPROSYN [Suspect]
     Active Substance: NAPROXEN
     Indication: PRODUCT USED FOR UNKNOWN INDICATION
     Route: 065
     Dates: start: 201305, end: 201305
  10. AERIUS [Concomitant]
     Route: 048
     Dates: start: 20130726, end: 20130726
  11. ALLEGRA [Concomitant]
     Active Substance: FEXOFENADINE HYDROCHLORIDE
     Dates: start: 20140205
  12. ARAVA [Concomitant]
     Active Substance: LEFLUNOMIDE
     Dates: start: 201401, end: 201401
  13. EUCRISA [Concomitant]
     Active Substance: CRISABOROLE
  14. ACTEMRA [Suspect]
     Active Substance: TOCILIZUMAB
     Route: 042
     Dates: start: 20140923, end: 20160413
  15. ACTEMRA [Suspect]
     Active Substance: TOCILIZUMAB
     Route: 042
     Dates: start: 20161107, end: 20161107
  16. PREDNISONE. [Suspect]
     Active Substance: PREDNISONE
     Indication: PRODUCT USED FOR UNKNOWN INDICATION
     Dosage: 10 MG DAILY (CURRENTLY 3 MG DAILY)
     Route: 065
  17. VITAMIN C [Concomitant]
     Active Substance: ASCORBIC ACID
  18. CLINDAMYCIN. [Suspect]
     Active Substance: CLINDAMYCIN
     Indication: CELLULITIS
     Route: 048
     Dates: start: 201502, end: 201502
  19. CODEINE [Suspect]
     Active Substance: CODEINE
     Indication: PRODUCT USED FOR UNKNOWN INDICATION
     Route: 065
  20. XELJANZ [Suspect]
     Active Substance: TOFACITINIB CITRATE
     Indication: STILL^S DISEASE
     Route: 065
  21. RISEDRONATE [Concomitant]
     Active Substance: RISEDRONATE SODIUM
  22. REACTINE (CANADA) [Concomitant]
     Active Substance: CETIRIZINE HYDROCHLORIDE
  23. ACTEMRA [Suspect]
     Active Substance: TOCILIZUMAB
     Route: 042
     Dates: start: 20160512, end: 20160609
  24. ACTEMRA [Suspect]
     Active Substance: TOCILIZUMAB
     Route: 042
     Dates: start: 20161208, end: 20161208
  25. ACTEMRA [Suspect]
     Active Substance: TOCILIZUMAB
     Indication: STILL^S DISEASE
     Dosage: ACTPEN
     Route: 058
     Dates: start: 20210323
  26. COLCHICINE. [Suspect]
     Active Substance: COLCHICINE
     Indication: PRODUCT USED FOR UNKNOWN INDICATION
     Route: 065
     Dates: start: 201306
  27. CELEBREX [Concomitant]
     Active Substance: CELECOXIB
  28. ACTEMRA [Suspect]
     Active Substance: TOCILIZUMAB
     Indication: STILL^S DISEASE
     Route: 042
     Dates: start: 20121205, end: 20140826
  29. ACTEMRA [Suspect]
     Active Substance: TOCILIZUMAB
     Route: 042
     Dates: start: 20160706, end: 20160906
  30. ACTEMRA [Suspect]
     Active Substance: TOCILIZUMAB
     Route: 042
     Dates: start: 20180815, end: 20210221
  31. MACROBID [Suspect]
     Active Substance: NITROFURANTOIN\NITROFURANTOIN MONOHYDRATE
     Indication: URINARY TRACT INFECTION
     Route: 065
     Dates: start: 20130404, end: 20130404
  32. OMEGA 3 [Concomitant]
     Active Substance: OMEGA-3 FATTY ACIDS
  33. LOSEC [Concomitant]
     Active Substance: OMEPRAZOLE

REACTIONS (77)
  - Pericarditis [Recovered/Resolved]
  - Arthropathy [Unknown]
  - Weight increased [Not Recovered/Not Resolved]
  - Drug hypersensitivity [Unknown]
  - Chronic spontaneous urticaria [Unknown]
  - Nasopharyngitis [Unknown]
  - Sinusitis [Recovered/Resolved]
  - Appetite disorder [Unknown]
  - Fatigue [Unknown]
  - Nasal congestion [Unknown]
  - Joint effusion [Unknown]
  - Chest pain [Recovered/Resolved]
  - Pleurisy [Unknown]
  - Hypersensitivity [Unknown]
  - Pain in extremity [Not Recovered/Not Resolved]
  - Skin disorder [Not Recovered/Not Resolved]
  - Peau d^orange [Unknown]
  - Off label use [Unknown]
  - Abdominal discomfort [Not Recovered/Not Resolved]
  - Lymphadenopathy [Not Recovered/Not Resolved]
  - Tendon rupture [Unknown]
  - Oral herpes [Unknown]
  - Arthrodesis [Unknown]
  - Upper respiratory tract infection [Unknown]
  - Eye discharge [Not Recovered/Not Resolved]
  - Abdominal tenderness [Not Recovered/Not Resolved]
  - White blood cells urine positive [Not Recovered/Not Resolved]
  - Weight fluctuation [Unknown]
  - Drug hypersensitivity [Not Recovered/Not Resolved]
  - Bone erosion [Unknown]
  - Hand deformity [Unknown]
  - Arthralgia [Unknown]
  - Cellulitis [Unknown]
  - Urticaria [Unknown]
  - Eye pain [Not Recovered/Not Resolved]
  - Chest pain [Unknown]
  - Urinary tract infection [Unknown]
  - Nausea [Not Recovered/Not Resolved]
  - Seasonal allergy [Unknown]
  - Sinusitis [Unknown]
  - Sinus pain [Not Recovered/Not Resolved]
  - Tendinous contracture [Unknown]
  - Productive cough [Unknown]
  - Pleural effusion [Unknown]
  - Ocular hyperaemia [Not Recovered/Not Resolved]
  - Toothache [Not Recovered/Not Resolved]
  - Axillary pain [Not Recovered/Not Resolved]
  - Pyrexia [Recovered/Resolved]
  - Chills [Unknown]
  - Acarodermatitis [Unknown]
  - Joint range of motion decreased [Unknown]
  - Urticaria [Unknown]
  - Pericarditis [Unknown]
  - Immunodeficiency [Unknown]
  - Swelling [Not Recovered/Not Resolved]
  - Pruritus [Not Recovered/Not Resolved]
  - Scab [Not Recovered/Not Resolved]
  - Musculoskeletal stiffness [Unknown]
  - Body temperature increased [Unknown]
  - Pulmonary oedema [Unknown]
  - Paranasal sinus discomfort [Unknown]
  - Injection site reaction [Unknown]
  - Paraesthesia [Unknown]
  - Rash [Unknown]
  - Drug hypersensitivity [Not Recovered/Not Resolved]
  - Pyrexia [Not Recovered/Not Resolved]
  - Abdominal distension [Unknown]
  - Musculoskeletal discomfort [Not Recovered/Not Resolved]
  - Eye irritation [Not Recovered/Not Resolved]
  - Erythema [Not Recovered/Not Resolved]
  - Rash [Recovered/Resolved]
  - Sinus congestion [Unknown]
  - Pain [Unknown]
  - Upper respiratory tract infection [Recovered/Resolved]
  - Multiple sclerosis [Unknown]
  - Eczema [Unknown]
  - Abdominal pain [Unknown]

NARRATIVE: CASE EVENT DATE: 2013
